FAERS Safety Report 4709523-9 (Version None)
Quarter: 2005Q3

REPORT INFORMATION
  Report Type: 
  Country: None (occurrence: None)
  Receive Date: 20050707
  Receipt Date: 20050624
  Transmission Date: 20060218
  Serious: Yes (Other)
  Sender: FDA-Public Use
  Company Number: 2005094522

PATIENT
  Age: 94 Year
  Sex: Male

DRUGS (2)
  1. VIAGRA [Suspect]
     Indication: ILL-DEFINED DISORDER
  2. LUPRON [Concomitant]

REACTIONS (2)
  - ERECTILE DYSFUNCTION [None]
  - PROSTATE CANCER [None]
